FAERS Safety Report 11574435 (Version 1)
Quarter: 2015Q3

REPORT INFORMATION
  Report Type: Spontaneous
  Country: None (occurrence: US)
  Receive Date: 20150930
  Receipt Date: 20150930
  Transmission Date: 20151125
  Serious: No
  Sender: FDA-Public Use
  Company Number: US-THE MEDICINES COMPANY-US-MDCO-15-00160

PATIENT
  Age: 31 Year
  Sex: Male

DRUGS (1)
  1. CLEVIPREX [Suspect]
     Active Substance: CLEVIDIPINE
     Indication: BLOOD PRESSURE MEASUREMENT
     Dosage: NOT REPORTED
     Dates: start: 20150312, end: 20150314

REACTIONS (8)
  - Protein total abnormal [Recovered/Resolved]
  - Liver function test abnormal [Recovered/Resolved]
  - Blood phosphorus abnormal [Recovered/Resolved]
  - Blood potassium abnormal [Recovered/Resolved]
  - Aspartate aminotransferase abnormal [Recovered/Resolved]
  - Coagulopathy [Unknown]
  - Blood magnesium abnormal [Recovered/Resolved]
  - Blood bilirubin abnormal [Recovered/Resolved]

NARRATIVE: CASE EVENT DATE: 20150312
